FAERS Safety Report 7323667-7 (Version None)
Quarter: 2011Q1

REPORT INFORMATION
  Report Type: 
  Country: None (occurrence: None)
  Receive Date: 20110301
  Receipt Date: 20110216
  Transmission Date: 20110831
  Serious: Yes (Disabling, Other)
  Sender: FDA-Public Use
  Company Number: US-ELI_LILLY_AND_COMPANY-US201102004965

PATIENT
  Age: 28 Year
  Sex: Female

DRUGS (1)
  1. ZYPREXA [Suspect]
     Indication: MAJOR DEPRESSION
     Dosage: 1.25 MG, DAILY (1/D)
     Dates: start: 20101129, end: 20110201

REACTIONS (2)
  - OFF LABEL USE [None]
  - BLINDNESS [None]
